FAERS Safety Report 16149730 (Version 3)
Quarter: 2019Q2

REPORT INFORMATION
  Report Type: Spontaneous
  Country: DE (occurrence: DE)
  Receive Date: 20190402
  Receipt Date: 20190521
  Transmission Date: 20190711
  Serious: Yes (Other)
  Sender: FDA-Public Use
  Company Number: DE-MYLANLABS-2019M1028459

PATIENT
  Age: 51 Year
  Sex: Male

DRUGS (1)
  1. IMATINIB. [Suspect]
     Active Substance: IMATINIB MESYLATE
     Indication: GASTROINTESTINAL STROMAL TUMOUR
     Dosage: 400 MILLIGRAM, QD
     Route: 065
     Dates: start: 200201

REACTIONS (4)
  - Gastrointestinal stromal tumour [Unknown]
  - Drug resistance [Recovering/Resolving]
  - Malignant neoplasm progression [Unknown]
  - Gene mutation [Recovering/Resolving]

NARRATIVE: CASE EVENT DATE: 2010
